FAERS Safety Report 8348196-3 (Version None)
Quarter: 2012Q2

REPORT INFORMATION
  Report Type: 
  Country: None (occurrence: None)
  Receive Date: 20120509
  Receipt Date: 20100709
  Transmission Date: 20120825
  Serious: No
  Sender: FDA-Public Use
  Company Number: US-TEVA-2010003715

PATIENT
  Sex: Male
  Weight: 99.88 kg

DRUGS (2)
  1. NEXIUM [Concomitant]
  2. NUVIGIL [Suspect]
     Indication: SLEEP APNOEA SYNDROME
     Dosage: 150 MILLIGRAM;
     Route: 048
     Dates: start: 20100709

REACTIONS (1)
  - FEELING ABNORMAL [None]
